FAERS Safety Report 25334099 (Version 2)
Quarter: 2025Q3

REPORT INFORMATION
  Report Type: Report from Study
  Country: US (occurrence: US)
  Receive Date: 20250520
  Receipt Date: 20250703
  Transmission Date: 20251020
  Serious: Yes (Other)
  Sender: SUNOVION
  Company Number: US-SMPA-2025SPA006092

PATIENT

DRUGS (2)
  1. ORGOVYX [Suspect]
     Active Substance: RELUGOLIX
     Indication: Prostate cancer
     Route: 048
     Dates: start: 20250401, end: 20250401
  2. ORGOVYX [Suspect]
     Active Substance: RELUGOLIX
     Dosage: 120 MG, QD
     Route: 048
     Dates: start: 20250402

REACTIONS (7)
  - Prostatic operation [Unknown]
  - Urinary retention [Unknown]
  - Palpitations [Unknown]
  - Laboratory test abnormal [Unknown]
  - Localised infection [Unknown]
  - Fatigue [Unknown]
  - Hot flush [Unknown]
